FAERS Safety Report 6965816-6 (Version None)
Quarter: 2010Q3

REPORT INFORMATION
  Report Type: 
  Country: None (occurrence: None)
  Receive Date: 20100903
  Receipt Date: 20100831
  Transmission Date: 20110219
  Serious: Yes (Life-Threatening)
  Sender: FDA-Public Use
  Company Number: GB-ROCHE-724745

PATIENT
  Age: 58 Year

DRUGS (2)
  1. NAPROXEN [Suspect]
     Indication: GOUT
     Route: 048
     Dates: start: 20100401, end: 20100801
  2. TAMSULOSIN HCL [Concomitant]

REACTIONS (1)
  - TONGUE OEDEMA [None]
